FAERS Safety Report 8058879-0 (Version None)
Quarter: 2012Q1

REPORT INFORMATION
  Report Type: 
  Country: None (occurrence: None)
  Receive Date: 20120120
  Receipt Date: 20111021
  Transmission Date: 20120608
  Serious: Yes (Hospitalization)
  Sender: FDA-Public Use
  Company Number: US-BRISTOL-MYERS SQUIBB COMPANY-16188740

PATIENT
  Sex: Male
  Weight: 70 kg

DRUGS (1)
  1. YERVOY [Suspect]
     Dosage: NO OF DOSES:3 3RD DOSE:22SEP2011

REACTIONS (1)
  - DIARRHOEA [None]
